FAERS Safety Report 26184283 (Version 1)
Quarter: 2025Q4

REPORT INFORMATION
  Report Type: Spontaneous
  Country: US (occurrence: US)
  Receive Date: 20251222
  Receipt Date: 20251222
  Transmission Date: 20260117
  Serious: No
  Sender: CSL BEHRING
  Company Number: US-BEH-2025229697

PATIENT
  Age: 51 Year
  Sex: Female

DRUGS (2)
  1. HIZENTRA [Suspect]
     Active Substance: HUMAN IMMUNOGLOBULIN G
     Indication: Immunodeficiency common variable
     Dosage: 8 G, QW (EVERY SUNDAY)
     Route: 058
     Dates: start: 201711
  2. HIZENTRA [Suspect]
     Active Substance: HUMAN IMMUNOGLOBULIN G
     Dosage: 6 G, QW (EVERY WEDNESDAY)
     Route: 058
     Dates: start: 201711

REACTIONS (2)
  - Headache [Unknown]
  - Decreased appetite [Unknown]
